FAERS Safety Report 15348133 (Version 2)
Quarter: 2018Q3

REPORT INFORMATION
  Report Type: Spontaneous
  Country: US (occurrence: US)
  Receive Date: 20180904
  Receipt Date: 20180925
  Transmission Date: 20181010
  Serious: Yes (Hospitalization, Other)
  Sender: FDA-Public Use
  Company Number: US-IMPAX LABORATORIES, INC-2018-IPXL-02833

PATIENT
  Sex: Female
  Weight: 35 kg

DRUGS (1)
  1. RYTARY [Suspect]
     Active Substance: CARBIDOPA\LEVODOPA
     Indication: PARKINSON^S DISEASE
     Dosage: 36.25/145 MG 4 CAPSULES, QID
     Route: 048
     Dates: start: 2018

REACTIONS (6)
  - Altered state of consciousness [Not Recovered/Not Resolved]
  - Drug effect incomplete [Not Recovered/Not Resolved]
  - Facial paresis [Not Recovered/Not Resolved]
  - Embolism [Recovered/Resolved]
  - Medication residue present [Not Recovered/Not Resolved]
  - Psychotic disorder [Not Recovered/Not Resolved]

NARRATIVE: CASE EVENT DATE: 2018
